FAERS Safety Report 6603179-6 (Version None)
Quarter: 2010Q1

REPORT INFORMATION
  Report Type: 
  Country: None (occurrence: None)
  Receive Date: 20100226
  Receipt Date: 20100218
  Transmission Date: 20100710
  Serious: Yes (Other)
  Sender: FDA-Public Use
  Company Number: FR-MPIJNJ-2010-01328

PATIENT

DRUGS (5)
  1. VELCADE [Suspect]
     Dosage: 2.3 MG, UNK
     Route: 042
     Dates: start: 20091109
  2. BACTRIM [Concomitant]
     Indication: PROPHYLAXIS
     Dosage: UNK
     Dates: start: 20091109
  3. LEDERFOLIN                         /00566702/ [Concomitant]
     Indication: PROPHYLAXIS
     Dosage: UNK
     Dates: start: 20091109
  4. ZELITREX                           /01269701/ [Concomitant]
     Indication: PROPHYLAXIS
     Dosage: UNK
     Dates: start: 20091109
  5. ARANESP [Concomitant]
     Indication: ADJUVANT THERAPY
     Dosage: UNK
     Dates: start: 20091109, end: 20091217

REACTIONS (1)
  - LYMPHOMA TRANSFORMATION [None]
